FAERS Safety Report 5518998-7 (Version None)
Quarter: 2007Q4

REPORT INFORMATION
  Report Type: 
  Country: None (occurrence: None)
  Receive Date: 20071114
  Receipt Date: 20071114
  Transmission Date: 20080405
  Serious: Yes (Other)
  Sender: FDA-Public Use
  Company Number: None

PATIENT
  Age: 76 Year
  Sex: Female
  Weight: 65.7716 kg

DRUGS (1)
  1. PROAIR HFA [Suspect]
     Indication: CHRONIC OBSTRUCTIVE PULMONARY DISEASE
     Dosage: 200 METERED INHALATIONS Q6H, PRN OTHER
     Route: 050
     Dates: start: 20070927, end: 20071101

REACTIONS (4)
  - PRURITUS GENERALISED [None]
  - SWOLLEN TONGUE [None]
  - TONGUE BLISTERING [None]
  - TONGUE DISORDER [None]
